FAERS Safety Report 6099185-3 (Version None)
Quarter: 2009Q1

REPORT INFORMATION
  Report Type: 
  Country: None (occurrence: None)
  Receive Date: 20090302
  Receipt Date: 20090220
  Transmission Date: 20090719
  Serious: No
  Sender: FDA-Public Use
  Company Number: US-JNJCH-2008051801

PATIENT
  Sex: Female

DRUGS (1)
  1. VISINE-A [Suspect]
     Indication: DRY EYE
     Dosage: TEXT:TWO DROPS IN EACH EYE ONE TIME
     Route: 047

REACTIONS (2)
  - APPLICATION SITE IRRITATION [None]
  - OFF LABEL USE [None]
